FAERS Safety Report 24930572 (Version 1)
Quarter: 2025Q1

REPORT INFORMATION
  Report Type: Spontaneous
  Country: US (occurrence: US)
  Receive Date: 20250205
  Receipt Date: 20250205
  Transmission Date: 20250409
  Serious: No
  Sender: MERCK
  Company Number: US-009507513-2502USA001598

PATIENT
  Age: 56 Year
  Sex: Female

DRUGS (8)
  1. CUBICIN [Suspect]
     Active Substance: DAPTOMYCIN
     Indication: Escherichia test positive
  2. CUBICIN [Suspect]
     Active Substance: DAPTOMYCIN
     Indication: Enterococcus test positive
  3. CUBICIN [Suspect]
     Active Substance: DAPTOMYCIN
     Indication: Sepsis
  4. CEFTRIAXONE [Concomitant]
     Active Substance: CEFTRIAXONE
     Indication: Escherichia test positive
  5. CEFTRIAXONE [Concomitant]
     Active Substance: CEFTRIAXONE
     Indication: Enterococcus test positive
  6. METRONIDAZOLE [Concomitant]
     Active Substance: METRONIDAZOLE
     Indication: Escherichia test positive
  7. METRONIDAZOLE [Concomitant]
     Active Substance: METRONIDAZOLE
     Indication: Enterococcus test positive
  8. PIPERACILLIN AND TAZOBACTAM [Concomitant]
     Active Substance: PIPERACILLIN SODIUM\TAZOBACTAM SODIUM
     Indication: Sepsis

REACTIONS (1)
  - Product use in unapproved indication [Unknown]
